FAERS Safety Report 9700340 (Version 3)
Quarter: 2013Q4

REPORT INFORMATION
  Report Type: Spontaneous
  Country: IT (occurrence: None)
  Receive Date: 20131119
  Receipt Date: 20131203
  Transmission Date: 20140711
  Serious: Yes (Life-Threatening)
  Sender: FDA-Public Use
  Company Number: AUR-APL-2013-09669

PATIENT
  Age: 21 Year
  Sex: Male

DRUGS (3)
  1. MONTELUKAST (MONTELUKAST) [Suspect]
     Indication: ASTHMA
     Route: 048
     Dates: start: 20131006, end: 20131106
  2. RUPAFIN [Suspect]
     Indication: ASTHMA
     Route: 048
     Dates: start: 20131006, end: 20131107
  3. ROLENIUM [Suspect]
     Indication: ASTHMA
     Route: 055
     Dates: start: 20131006, end: 20131107

REACTIONS (3)
  - Drug ineffective [None]
  - Laryngospasm [None]
  - Therapeutic product ineffective [None]
